FAERS Safety Report 6314910-1 (Version None)
Quarter: 2009Q3

REPORT INFORMATION
  Report Type: 
  Country: None (occurrence: None)
  Receive Date: 20090819
  Receipt Date: 20090810
  Transmission Date: 20100115
  Serious: Yes (Death)
  Sender: FDA-Public Use
  Company Number: A0764160A

PATIENT
  Age: 11 Year
  Sex: Male

DRUGS (4)
  1. ADVAIR HFA [Suspect]
     Indication: DRUG USE FOR UNKNOWN INDICATION
     Route: 055
  2. SEREVENT [Suspect]
     Indication: DRUG USE FOR UNKNOWN INDICATION
     Route: 055
  3. ALBUTEROL [Concomitant]
  4. SINGULAIR [Concomitant]

REACTIONS (1)
  - ASTHMA [None]
